FAERS Safety Report 10409255 (Version 2)
Quarter: 2014Q3

REPORT INFORMATION
  Report Type: Report from Study
  Country: US (occurrence: US)
  Receive Date: 20140826
  Receipt Date: 20140911
  Transmission Date: 20150326
  Serious: Yes (Hospitalization)
  Sender: FDA-Public Use
  Company Number: US-JNJFOC-20140817821

PATIENT
  Age: 33 Year
  Sex: Male
  Weight: 79.2 kg

DRUGS (9)
  1. HEROIN [Concomitant]
     Active Substance: DIACETYLMORPHINE
     Indication: PRODUCT USED FOR UNKNOWN INDICATION
     Route: 065
  2. METHAMPHETAMINE [Suspect]
     Active Substance: METHAMPHETAMINE
     Indication: SELF INJURIOUS BEHAVIOUR
     Route: 048
     Dates: start: 20140816
  3. HYDROXYZINE [Suspect]
     Active Substance: HYDROXYZINE\HYDROXYZINE HYDROCHLORIDE
     Indication: SELF INJURIOUS BEHAVIOUR
     Route: 048
     Dates: start: 20140816
  4. VICKS NYQUIL [Suspect]
     Active Substance: ACETAMINOPHEN\DEXTROMETHORPHAN HYDROBROMIDE\DOXYLAMINE SUCCINATE
     Indication: SELF INJURIOUS BEHAVIOUR
     Route: 048
     Dates: start: 20140816
  5. ACETAMINOPHEN. [Suspect]
     Active Substance: ACETAMINOPHEN
     Route: 048
  6. ETHANOL [Suspect]
     Active Substance: ALCOHOL
     Indication: SELF INJURIOUS BEHAVIOUR
     Route: 048
     Dates: start: 20140816
  7. ACETAMINOPHEN. [Suspect]
     Active Substance: ACETAMINOPHEN
     Indication: SELF INJURIOUS BEHAVIOUR
     Route: 048
     Dates: start: 20140816
  8. OXYCODONE [Suspect]
     Active Substance: OXYCODONE
     Indication: PRODUCT USED FOR UNKNOWN INDICATION
     Route: 048
     Dates: start: 20140816
  9. ALPRAZOLAM. [Suspect]
     Active Substance: ALPRAZOLAM
     Indication: PRODUCT USED FOR UNKNOWN INDICATION
     Route: 048
     Dates: start: 20140816

REACTIONS (1)
  - Intentional overdose [Unknown]

NARRATIVE: CASE EVENT DATE: 20140816
